FAERS Safety Report 21488559 (Version 1)
Quarter: 2022Q4

REPORT INFORMATION
  Report Type: Spontaneous
  Country: US (occurrence: US)
  Receive Date: 20221021
  Receipt Date: 20221021
  Transmission Date: 20230113
  Serious: No
  Sender: FDA-Public Use
  Company Number: US-CELLTRION INC.-2022US006274

PATIENT

DRUGS (1)
  1. INFLECTRA [Suspect]
     Active Substance: INFLIXIMAB-DYYB
     Indication: Product used for unknown indication
     Dosage: 600 MG/KG 5MG/PER KG; FREQUENCY: 0,2,6 WEEKS THEN EVERY8WEEKS PER PROTOCOL
     Route: 065

REACTIONS (1)
  - Unevaluable event [Unknown]
